FAERS Safety Report 6340242-1 (Version None)
Quarter: 2009Q3

REPORT INFORMATION
  Report Type: 
  Country: None (occurrence: None)
  Receive Date: 20090902
  Receipt Date: 20090822
  Transmission Date: 20100115
  Serious: Yes (Life-Threatening, Other)
  Sender: FDA-Public Use
  Company Number: 2009-02664

PATIENT
  Age: 68 Year
  Sex: Male

DRUGS (4)
  1. VELCADE [Suspect]
     Indication: MULTIPLE MYELOMA
     Dosage: 1.3 MG/M2, INTRAVENOUS
     Route: 042
     Dates: start: 20090610, end: 20090617
  2. DEXAMETHASONE TAB [Suspect]
     Indication: MULTIPLE MYELOMA
     Dosage: 40 MG
     Dates: start: 20090610
  3. CYCLOPHOSPHAMIDE [Suspect]
     Indication: DRUG USE FOR UNKNOWN INDICATION
  4. ACYCLOVIR [Concomitant]

REACTIONS (10)
  - CEREBRAL HAEMORRHAGE [None]
  - COOMBS NEGATIVE HAEMOLYTIC ANAEMIA [None]
  - DEPENDENCE ON ENABLING MACHINE OR DEVICE [None]
  - ESCHERICHIA SEPSIS [None]
  - GASTROINTESTINAL CANDIDIASIS [None]
  - HAEMOLYTIC URAEMIC SYNDROME [None]
  - RENAL FAILURE [None]
  - THERAPEUTIC RESPONSE INCREASED [None]
  - THROMBOTIC THROMBOCYTOPENIC PURPURA [None]
  - TUMOUR LYSIS SYNDROME [None]
